FAERS Safety Report 10229490 (Version 5)
Quarter: 2015Q3

REPORT INFORMATION
  Report Type: Report from Study
  Country: JP (occurrence: JP)
  Receive Date: 20140611
  Receipt Date: 20150806
  Transmission Date: 20151125
  Serious: Yes (Other)
  Sender: FDA-Public Use
  Company Number: PHHY2014JP070443

PATIENT
  Age: 59 Year
  Sex: Female

DRUGS (33)
  1. CLOZARIL [Suspect]
     Active Substance: CLOZAPINE
     Indication: SCHIZOPHRENIA, UNDIFFERENTIATED TYPE
     Dosage: 12.5 MG, QD
     Route: 048
     Dates: start: 20110908, end: 20110912
  2. CLOZARIL [Suspect]
     Active Substance: CLOZAPINE
     Dosage: 225 MG, QD
     Route: 048
     Dates: start: 20120309, end: 20120805
  3. RIVOTRIL [Suspect]
     Active Substance: CLONAZEPAM
     Dosage: 2.5 MG, QD
     Route: 048
     Dates: start: 20121112
  4. CLOZARIL [Suspect]
     Active Substance: CLOZAPINE
     Dosage: 200 MG, QD
     Route: 048
     Dates: start: 20120806, end: 20120819
  5. CLOZARIL [Suspect]
     Active Substance: CLOZAPINE
     Dosage: 225 MG, QD
     Route: 048
     Dates: start: 20121112, end: 20121227
  6. GLACTIV [Concomitant]
     Active Substance: SITAGLIPTIN
     Indication: PRODUCT USED FOR UNKNOWN INDICATION
     Dosage: 50 MG, QD
     Route: 048
     Dates: start: 20120909
  7. MAGNESIUM [Concomitant]
     Active Substance: MAGNESIUM
     Indication: CONSTIPATION
     Dosage: 1 G, QD
     Route: 048
     Dates: start: 20120909, end: 20121028
  8. MAGNESIUM [Concomitant]
     Active Substance: MAGNESIUM
     Dosage: 2 G, QD
     Route: 048
     Dates: start: 20121029
  9. CLOZARIL [Suspect]
     Active Substance: CLOZAPINE
     Dosage: 125 MG, QD
     Route: 048
     Dates: start: 20111014, end: 20111020
  10. CLOZARIL [Suspect]
     Active Substance: CLOZAPINE
     Dosage: 200 MG, QD
     Route: 048
     Dates: start: 20111028, end: 20111031
  11. CLOZARIL [Suspect]
     Active Substance: CLOZAPINE
     Dosage: 225 MG, QD
     Route: 048
     Dates: start: 20120924, end: 20120930
  12. CLOZARIL [Suspect]
     Active Substance: CLOZAPINE
     Dosage: 75 MG, QD
     Route: 048
     Dates: start: 20110923, end: 20110929
  13. CLOZARIL [Suspect]
     Active Substance: CLOZAPINE
     Dosage: 175 MG, QD
     Route: 048
     Dates: start: 20111021, end: 20111027
  14. LITHIUM CARBONATE. [Suspect]
     Active Substance: LITHIUM CARBONATE
     Indication: SCHIZOPHRENIA, UNDIFFERENTIATED TYPE
     Dosage: 400 MG, QD
     Route: 048
     Dates: start: 20110901
  15. CLOZARIL [Suspect]
     Active Substance: CLOZAPINE
     Dosage: 225 MG, QD
     Route: 048
     Dates: start: 20111101, end: 20111104
  16. CLOZARIL [Suspect]
     Active Substance: CLOZAPINE
     Dosage: 175 MG, QD
     Route: 048
     Dates: start: 20120820, end: 20120923
  17. RIVOTRIL [Suspect]
     Active Substance: CLONAZEPAM
     Dosage: 2.5 MG, QD
     Route: 048
     Dates: start: 20121015, end: 20121028
  18. RIVOTRIL [Suspect]
     Active Substance: CLONAZEPAM
     Dosage: 3.5 MG, QD
     Route: 048
     Dates: start: 20121029, end: 20121111
  19. CLOZARIL [Suspect]
     Active Substance: CLOZAPINE
     Dosage: 25 MG, QD
     Route: 048
     Dates: start: 20110913, end: 20110915
  20. CLOZARIL [Suspect]
     Active Substance: CLOZAPINE
     Dosage: 50 MG, QD
     Route: 048
     Dates: start: 20110916, end: 20110922
  21. CLOZARIL [Suspect]
     Active Substance: CLOZAPINE
     Dosage: 250 MG, QD
     Route: 048
     Dates: start: 20111105, end: 20111124
  22. CLOZARIL [Suspect]
     Active Substance: CLOZAPINE
     Dosage: 300 MG, QD
     Route: 048
     Dates: start: 20121001, end: 20121111
  23. RIVOTRIL [Suspect]
     Active Substance: CLONAZEPAM
     Dosage: 0.75 MG, QD
     Route: 048
     Dates: start: 20120924, end: 20120930
  24. LORAZEPAM. [Concomitant]
     Active Substance: LORAZEPAM
     Indication: SCHIZOPHRENIA, UNDIFFERENTIATED TYPE
     Dosage: 2 MG, QD
     Route: 048
     Dates: start: 20110826, end: 20111031
  25. CLOZARIL [Suspect]
     Active Substance: CLOZAPINE
     Dosage: 100 MG, QD
     Route: 048
     Dates: start: 20110930, end: 20111013
  26. CLOZARIL [Suspect]
     Active Substance: CLOZAPINE
     Dosage: 225 MG, QD
     Route: 048
     Dates: start: 20111125
  27. LITHIUM CARBONATE. [Suspect]
     Active Substance: LITHIUM CARBONATE
     Dosage: 600 MG, QD
     Route: 048
     Dates: start: 20120309, end: 20121111
  28. LITHIUM CARBONATE. [Suspect]
     Active Substance: LITHIUM CARBONATE
     Dosage: 400 MG, QD
     Route: 048
     Dates: start: 20121112, end: 20121216
  29. RIVOTRIL [Suspect]
     Active Substance: CLONAZEPAM
     Indication: PARKINSONISM
     Dosage: 0.5 MG, QD
     Route: 048
     Dates: start: 20120909, end: 20120923
  30. RIVOTRIL [Suspect]
     Active Substance: CLONAZEPAM
     Dosage: 1.5 MG, QD
     Route: 048
     Dates: start: 20121001, end: 20121014
  31. METGLUCO [Concomitant]
     Active Substance: METFORMIN HYDROCHLORIDE
     Indication: PRODUCT USED FOR UNKNOWN INDICATION
     Dosage: 750 MG, QD
     Route: 048
     Dates: start: 20120909, end: 20121028
  32. METGLUCO [Concomitant]
     Active Substance: METFORMIN HYDROCHLORIDE
     Dosage: 250 MG, QD
     Route: 048
     Dates: start: 20121029, end: 20121216
  33. BIO-THREE [Concomitant]
     Active Substance: HERBALS
     Indication: CONSTIPATION
     Dosage: 3000 MG, QD
     Route: 048
     Dates: start: 20120909

REACTIONS (22)
  - Mental impairment [Unknown]
  - Eosinophil percentage increased [Recovered/Resolved]
  - Lymphocyte percentage decreased [Recovered/Resolved]
  - Infection [Unknown]
  - Sedation [Recovered/Resolved]
  - Neutrophil percentage increased [Recovered/Resolved]
  - Hepatitis [Recovered/Resolved]
  - Blood pressure systolic increased [Unknown]
  - Blood glucose increased [Recovered/Resolved]
  - Glycosylated haemoglobin increased [Recovered/Resolved]
  - Neutrophil percentage increased [Recovered/Resolved]
  - Parkinsonism [Recovering/Resolving]
  - Dystonia [Recovering/Resolving]
  - Liver disorder [Recovered/Resolved]
  - Constipation [Recovering/Resolving]
  - Neutrophil percentage increased [Recovered/Resolved]
  - Blood creatine phosphokinase increased [Unknown]
  - White blood cell count increased [Recovered/Resolved]
  - Pyrexia [Recovering/Resolving]
  - Lymphocyte percentage decreased [Recovered/Resolved]
  - Glycosylated haemoglobin increased [Recovered/Resolved]
  - Haemoglobin decreased [Unknown]

NARRATIVE: CASE EVENT DATE: 20111006
